FAERS Safety Report 6160770-1 (Version None)
Quarter: 2009Q2

REPORT INFORMATION
  Report Type: 
  Country: None (occurrence: None)
  Receive Date: 20090420
  Receipt Date: 20090413
  Transmission Date: 20091009
  Serious: Yes (Hospitalization)
  Sender: FDA-Public Use
  Company Number: PHHY2009CO13905

PATIENT
  Age: 82 Year
  Sex: Female

DRUGS (5)
  1. RASILEZ [Suspect]
     Indication: HYPERTENSION
     Dosage: 450 MG
     Route: 048
     Dates: start: 20081001
  2. RASILEZ [Suspect]
     Dosage: 300 MG
     Route: 048
  3. CATAPRESAN [Concomitant]
     Indication: HYPERTENSION
  4. MICARDIS [Concomitant]
     Indication: HYPERTENSION
  5. NORVASC [Concomitant]
     Indication: HYPERTENSION

REACTIONS (5)
  - CHOLESTASIS [None]
  - EPIGASTRIC DISCOMFORT [None]
  - FEELING ABNORMAL [None]
  - JAUNDICE [None]
  - WEIGHT DECREASED [None]
